FAERS Safety Report 5505735-5 (Version None)
Quarter: 2007Q4

REPORT INFORMATION
  Report Type: 
  Country: None (occurrence: None)
  Receive Date: 20071102
  Receipt Date: 20071030
  Transmission Date: 20080405
  Serious: Yes (Hospitalization)
  Sender: FDA-Public Use
  Company Number: DE-SANOFI-SYNTHELABO-F04200700081

PATIENT
  Sex: Male
  Weight: 76 kg

DRUGS (5)
  1. DOXYCYCLIN [Concomitant]
     Indication: DRUG USE FOR UNKNOWN INDICATION
     Dosage: 1000 MG
     Route: 065
     Dates: start: 20070703
  2. CAPECITABINE [Suspect]
     Indication: COLON CANCER
     Route: 041
     Dates: start: 20071001, end: 20071026
  3. BEVACIZUMAB [Concomitant]
     Indication: COLON CANCER
     Route: 041
     Dates: start: 20071009, end: 20071009
  4. CETUXIMAB [Concomitant]
     Indication: COLON CANCER
     Route: 042
     Dates: start: 20071023, end: 20071023
  5. ELOXATIN [Suspect]
     Indication: COLON CANCER
     Route: 041
     Dates: start: 20071009, end: 20071009

REACTIONS (4)
  - CIRCULATORY COLLAPSE [None]
  - DEHYDRATION [None]
  - DIARRHOEA [None]
  - MALNUTRITION [None]
